FAERS Safety Report 4716998-8 (Version None)
Quarter: 2005Q3

REPORT INFORMATION
  Report Type: 
  Country: None (occurrence: None)
  Receive Date: 20050719
  Receipt Date: 20050712
  Transmission Date: 20060218
  Serious: Yes (Hospitalization)
  Sender: FDA-Public Use
  Company Number: JP-ROCHE-410804

PATIENT
  Age: 76 Year
  Sex: Male

DRUGS (5)
  1. CLONAZEPAM [Suspect]
     Indication: DRUG USE FOR UNKNOWN INDICATION
     Route: 048
     Dates: start: 20050617, end: 20050708
  2. PRAVASTATIN SODIUM [Concomitant]
     Dosage: TRADE NAME OF DRUG REPORTED AS 'PRAVAMATE'.
     Route: 048
  3. ASPIRIN [Concomitant]
     Route: 048
     Dates: start: 20050520
  4. CORTRIL [Concomitant]
     Route: 048
  5. THYRADIN S [Concomitant]
     Route: 048

REACTIONS (3)
  - PYREXIA [None]
  - RENAL DISORDER [None]
  - URTICARIA GENERALISED [None]
